FAERS Safety Report 10214892 (Version 4)
Quarter: 2014Q3

REPORT INFORMATION
  Report Type: Spontaneous
  Country: RS (occurrence: RS)
  Receive Date: 20140603
  Receipt Date: 20140716
  Transmission Date: 20150326
  Serious: Yes (Other)
  Sender: FDA-Public Use
  Company Number: RS-ASTELLAS-2014US005982

PATIENT
  Sex: Male

DRUGS (1)
  1. TARCEVA [Suspect]
     Active Substance: ERLOTINIB HYDROCHLORIDE
     Indication: LUNG ADENOCARCINOMA
     Route: 065
     Dates: start: 20130808, end: 20140129

REACTIONS (7)
  - Rash [Unknown]
  - Nail disorder [Unknown]
  - Anaemia [Unknown]
  - Paronychia [Unknown]
  - Eye irritation [Recovered/Resolved]
  - Malignant neoplasm progression [Unknown]
  - Angiopathy [Unknown]

NARRATIVE: CASE EVENT DATE: 201308
